FAERS Safety Report 6725036-7 (Version None)
Quarter: 2010Q2

REPORT INFORMATION
  Report Type: 
  Country: None (occurrence: None)
  Receive Date: 20100514
  Receipt Date: 20100510
  Transmission Date: 20101027
  Serious: No
  Sender: FDA-Public Use
  Company Number: US-BIOGENIDEC-2010BI015323

PATIENT
  Sex: Female

DRUGS (2)
  1. AVONEX [Suspect]
     Indication: MULTIPLE SCLEROSIS
     Route: 030
     Dates: start: 20010901, end: 20030101
  2. AVONEX [Suspect]
     Route: 030
     Dates: start: 20030101

REACTIONS (17)
  - ANXIETY [None]
  - CELLULITIS [None]
  - CONFUSIONAL STATE [None]
  - DIZZINESS [None]
  - DYSPHEMIA [None]
  - EMOTIONAL DISORDER [None]
  - FEAR [None]
  - FEAR OF NEEDLES [None]
  - HEADACHE [None]
  - INFLUENZA LIKE ILLNESS [None]
  - INJECTION SITE HAEMATOMA [None]
  - INJECTION SITE HAEMORRHAGE [None]
  - INJECTION SITE PAIN [None]
  - MULTIPLE SCLEROSIS [None]
  - RETCHING [None]
  - STRESS AT WORK [None]
  - VISION BLURRED [None]
